FAERS Safety Report 4433600-3 (Version None)
Quarter: 2004Q3

REPORT INFORMATION
  Report Type: 
  Country: None (occurrence: None)
  Receive Date: 20040825
  Receipt Date: 20040825
  Transmission Date: 20050211
  Serious: No
  Sender: FDA-Public Use
  Company Number: None

PATIENT
  Age: 42 Year
  Sex: Female
  Weight: 47.6277 kg

DRUGS (2)
  1. ZOOM TEETH WHITENING [Suspect]
     Indication: DENTAL TREATMENT
     Dosage: STANDARD-APPLIED TO TEETH
     Dates: start: 20040812
  2. ZOOM TEETH WHITENING [Suspect]
     Indication: TOOTH DISCOLOURATION
     Dosage: STANDARD-APPLIED TO TEETH
     Dates: start: 20040812

REACTIONS (6)
  - APPLICATION SITE REACTION [None]
  - BURNING SENSATION [None]
  - GINGIVAL PAIN [None]
  - GINGIVAL ULCERATION [None]
  - MOUTH ULCERATION [None]
  - TOOTHACHE [None]
